FAERS Safety Report 6858314-1 (Version None)
Quarter: 2010Q3

REPORT INFORMATION
  Report Type: 
  Country: None (occurrence: None)
  Receive Date: 20100719
  Receipt Date: 20080205
  Transmission Date: 20110219
  Serious: No
  Sender: FDA-Public Use
  Company Number: US-PFIZER INC-2008013898

PATIENT
  Sex: Female
  Weight: 50 kg

DRUGS (8)
  1. CHANTIX [Suspect]
     Indication: SMOKING CESSATION THERAPY
     Dates: start: 20080129, end: 20080203
  2. LISINOPRIL [Concomitant]
  3. HYDROCHLOROTHIAZIDE [Concomitant]
  4. ALPRAZOLAM [Concomitant]
  5. TRAZODONE HYDROCHLORIDE [Concomitant]
  6. SERTRALINE HCL [Concomitant]
  7. OMEPRAZOLE [Concomitant]
  8. ATENOLOL [Concomitant]

REACTIONS (2)
  - GASTRITIS [None]
  - NAUSEA [None]
